FAERS Safety Report 21533330 (Version 8)
Quarter: 2023Q1

REPORT INFORMATION
  Report Type: Report from Study
  Country: MX (occurrence: None)
  Receive Date: 20221101
  Receipt Date: 20230202
  Transmission Date: 20230417
  Serious: Yes (Hospitalization)
  Sender: FDA-Public Use
  Company Number: MX-Eisai Medical Research-EC-2022-126911

PATIENT
  Age: 74 Year
  Sex: Female
  Weight: 69.7 kg

DRUGS (17)
  1. LENVATINIB [Suspect]
     Active Substance: LENVATINIB
     Indication: Clear cell renal cell carcinoma
     Dosage: STARTING DOSE 20MG, FLUCTUATED DOSAGE
     Route: 048
     Dates: start: 20220310, end: 20221024
  2. LENVATINIB [Suspect]
     Active Substance: LENVATINIB
     Indication: Renal cell carcinoma
     Route: 048
     Dates: start: 20221117
  3. PEMBROLIZUMAB [Suspect]
     Active Substance: PEMBROLIZUMAB
     Indication: Clear cell renal cell carcinoma
     Route: 041
     Dates: start: 20220310, end: 20221006
  4. PEMBROLIZUMAB [Suspect]
     Active Substance: PEMBROLIZUMAB
     Indication: Renal cell carcinoma
     Route: 041
     Dates: start: 20221117
  5. METFORMIN [Concomitant]
     Active Substance: METFORMIN HYDROCHLORIDE
     Dates: start: 201201
  6. LEVOTHYROXINE SODIUM [Concomitant]
     Active Substance: LEVOTHYROXINE SODIUM
     Dates: start: 202003
  7. LOSARTAN [Concomitant]
     Active Substance: LOSARTAN
     Dates: start: 200007
  8. ESCITALOPRAM [Concomitant]
     Active Substance: ESCITALOPRAM OXALATE
     Dates: start: 202201, end: 20230118
  9. DEXKETOPROFEN [Concomitant]
     Active Substance: DEXKETOPROFEN
     Dates: start: 20220317
  10. HYDROCHLOROTHIAZIDE [Concomitant]
     Active Substance: HYDROCHLOROTHIAZIDE
     Dates: start: 20220322
  11. AMLODIPINE [Concomitant]
     Active Substance: AMLODIPINE BESYLATE
     Dates: start: 20220421
  12. ACETAMINOPHEN [Concomitant]
     Active Substance: ACETAMINOPHEN
     Dates: start: 20220509, end: 20221024
  13. OMEPRAZOLE [Concomitant]
     Active Substance: OMEPRAZOLE
     Dates: start: 20220824
  14. MAGALDRATE [Concomitant]
     Active Substance: MAGALDRATE
     Dates: start: 20220824, end: 20221227
  15. DIMETHICONE [Concomitant]
     Active Substance: DIMETHICONE
     Dates: start: 20220824, end: 20221227
  16. CYPROHEPTADINE PYRIDOXALPHOSPHATE [Concomitant]
     Dates: start: 20220913, end: 20221110
  17. PREDNISONE [Concomitant]
     Active Substance: PREDNISONE
     Dates: start: 20220913, end: 20221110

REACTIONS (1)
  - Abdominal pain [Recovered/Resolved]

NARRATIVE: CASE EVENT DATE: 20221025
